FAERS Safety Report 4486521-4 (Version None)
Quarter: 2004Q4

REPORT INFORMATION
  Report Type: 
  Country: None (occurrence: None)
  Receive Date: 20041021
  Receipt Date: 20041008
  Transmission Date: 20050328
  Serious: Yes (Hospitalization)
  Sender: FDA-Public Use
  Company Number: K200401543

PATIENT
  Age: 59 Year
  Sex: Male

DRUGS (7)
  1. ALTACE [Suspect]
     Indication: HYPERTENSION
     Dosage: 5MG, QD, ORAL
     Route: 048
     Dates: start: 20040402
  2. METOPROLOL SUCCINATE [Suspect]
     Indication: HYPERTENSION
     Dosage: 95 MG, QD, ORAL
     Route: 048
     Dates: start: 20040331
  3. DIGITOXIN TAB [Concomitant]
  4. FALITHROM ^FAHLBERG^ (PHENPROCOUMON) TABLET [Concomitant]
  5. INSULIN ACTRAPHANE (INSULIN HUMAN INJECTION, ISOPHANE) SOLUTION [Concomitant]
  6. PLAVIX [Concomitant]
  7. SORTIS ^GOEDECKE^ (ATORVASTATIN CALCIUM) TABLET [Concomitant]

REACTIONS (6)
  - ARRHYTHMIA [None]
  - ATRIAL FIBRILLATION [None]
  - ELECTROCARDIOGRAM ABNORMAL [None]
  - ELECTROCARDIOGRAM POOR R-WAVE PROGRESSION [None]
  - HYPERTENSION [None]
  - ORTHOSTATIC HYPOTENSION [None]
